FAERS Safety Report 9288149 (Version 2)
Quarter: 2013Q4

REPORT INFORMATION
  Report Type: Spontaneous
  Country: GB (occurrence: GB)
  Receive Date: 20130514
  Receipt Date: 20131007
  Transmission Date: 20140711
  Serious: Yes (Other)
  Sender: FDA-Public Use
  Company Number: GB-JNJFOC-20130503742

PATIENT
  Age: 34 Year
  Sex: Male
  Weight: 73.5 kg

DRUGS (2)
  1. STELARA [Suspect]
     Indication: PSORIASIS
     Route: 058
     Dates: start: 20130405
  2. CICLOSPORIN [Concomitant]
     Indication: PSORIASIS
     Route: 048
     Dates: start: 20120104

REACTIONS (3)
  - Skin infection [Recovered/Resolved]
  - Diarrhoea [Recovered/Resolved]
  - Nausea [Recovered/Resolved]
